FAERS Safety Report 7912058-3 (Version None)
Quarter: 2011Q4

REPORT INFORMATION
  Report Type: 
  Country: None (occurrence: None)
  Receive Date: 20111114
  Receipt Date: 20111102
  Transmission Date: 20120403
  Serious: Yes (Life-Threatening, Hospitalization, Other)
  Sender: FDA-Public Use
  Company Number: KR-JNJFOC-20111101476

PATIENT
  Age: 60 Year
  Sex: Male

DRUGS (2)
  1. TOPIRAMATE [Suspect]
     Indication: EPILEPSY
     Route: 048
  2. VALPROATE SODIUM [Concomitant]
     Indication: EPILEPSY
     Route: 065

REACTIONS (5)
  - CONVULSION [None]
  - CYANOSIS [None]
  - APNOEA [None]
  - VENTRICULAR FIBRILLATION [None]
  - ALTERED STATE OF CONSCIOUSNESS [None]
